FAERS Safety Report 6004956-5 (Version None)
Quarter: 2008Q4

REPORT INFORMATION
  Report Type: 
  Country: None (occurrence: None)
  Receive Date: 20081216
  Receipt Date: 20071221
  Transmission Date: 20090506
  Serious: No
  Sender: FDA-Public Use
  Company Number: US-AMGEN-KDL257916

PATIENT
  Sex: Female

DRUGS (4)
  1. ENBREL [Suspect]
     Indication: RHEUMATOID ARTHRITIS
     Route: 058
     Dates: start: 20071214
  2. HYDROXYCHLOROQUINE SULFATE [Concomitant]
     Dates: start: 20060101
  3. SULFASALAZINE [Concomitant]
     Dates: start: 20060101
  4. METHOTREXATE [Concomitant]
     Dates: start: 20060101

REACTIONS (1)
  - HEAD INJURY [None]
